FAERS Safety Report 16707038 (Version 1)
Quarter: 2019Q3

REPORT INFORMATION
  Report Type: Spontaneous
  Country: US (occurrence: US)
  Receive Date: 20190815
  Receipt Date: 20190815
  Transmission Date: 20191004
  Serious: No
  Sender: FDA-Public Use
  Company Number: US-THERAPEUTICSMD-2019TMD01422

PATIENT
  Sex: Female

DRUGS (2)
  1. BIJUVA [Suspect]
     Active Substance: ESTRADIOL\PROGESTERONE
     Dosage: UNK, 1X/DAY BETWEEN 3:00 AND 4:00 PM
     Dates: start: 201906
  2. BIJUVA [Suspect]
     Active Substance: ESTRADIOL\PROGESTERONE
     Dosage: UNK, 1X/DAY IN THE EVENING (BETWEEN 6:30 AND 7:30PM)
     Dates: start: 20190501, end: 201906

REACTIONS (2)
  - Nausea [Unknown]
  - Middle insomnia [Unknown]

NARRATIVE: CASE EVENT DATE: 2019
